FAERS Safety Report 8035982-2 (Version None)
Quarter: 2012Q1

REPORT INFORMATION
  Report Type: 
  Country: None (occurrence: None)
  Receive Date: 20120106
  Receipt Date: 20111219
  Transmission Date: 20120608
  Serious: Yes (Hospitalization)
  Sender: FDA-Public Use
  Company Number: 2011SP059203

PATIENT
  Age: 24 Year
  Sex: Male

DRUGS (2)
  1. PREGNYL [Suspect]
     Indication: AZOOSPERMIA
     Dosage: 1500 IU;BIW; IM
     Route: 030
     Dates: start: 20110903, end: 20111006
  2. PREGNYL [Suspect]
     Indication: INFERTILITY FEMALE
     Dosage: 1500 IU;BIW; IM
     Route: 030
     Dates: start: 20110903, end: 20111006

REACTIONS (3)
  - ASCITES [None]
  - BODY TEMPERATURE INCREASED [None]
  - HEPATOSPLENOMEGALY [None]
